FAERS Safety Report 9282413 (Version 1)
Quarter: 2013Q2

REPORT INFORMATION
  Report Type: Spontaneous
  Country: US (occurrence: US)
  Receive Date: 20130510
  Receipt Date: 20130510
  Transmission Date: 20140414
  Serious: Yes (Death, Hospitalization)
  Sender: FDA-Public Use
  Company Number: US-ASTELLAS-2013US004843

PATIENT
  Age: 63 Year
  Sex: Male

DRUGS (4)
  1. TARCEVA [Suspect]
     Indication: LUNG NEOPLASM MALIGNANT
     Dosage: 150 MG, UID/QD
     Route: 048
     Dates: start: 20130404, end: 20130419
  2. VICODIN [Concomitant]
     Indication: PAIN
     Dosage: 5/500 AS REQURIED
     Route: 048
  3. FOLIC ACID [Concomitant]
     Indication: PRODUCT USED FOR UNKNOWN INDICATION
     Dosage: UNK
     Route: 065
  4. LOSARTAN [Concomitant]
     Indication: HYPERTENSION
     Dosage: 25 MG, UNKNOWN/D
     Route: 065

REACTIONS (1)
  - Pneumonia [Fatal]
